FAERS Safety Report 4880318-9 (Version None)
Quarter: 2006Q1

REPORT INFORMATION
  Report Type: 
  Country: None (occurrence: None)
  Receive Date: 20060113
  Receipt Date: 20060105
  Transmission Date: 20060701
  Serious: Yes (Death)
  Sender: FDA-Public Use
  Company Number: FR-BRISTOL-MYERS SQUIBB COMPANY-13238969

PATIENT
  Age: 20 Year
  Sex: Male

DRUGS (3)
  1. ABILIFY [Suspect]
     Indication: PSYCHOTIC DISORDER
     Route: 048
     Dates: start: 20051212
  2. ABILIFY [Suspect]
     Route: 048
     Dates: end: 20051219
  3. RIVOTRIL [Concomitant]

REACTIONS (2)
  - COMPLETED SUICIDE [None]
  - EXCITABILITY [None]
